FAERS Safety Report 25866356 (Version 1)
Quarter: 2025Q3

REPORT INFORMATION
  Report Type: Spontaneous
  Country: US (occurrence: US)
  Receive Date: 20250930
  Receipt Date: 20250930
  Transmission Date: 20251020
  Serious: Yes (Other)
  Sender: ELI LILLY AND COMPANY
  Company Number: US-ELI_LILLY_AND_COMPANY-US202509023132

PATIENT
  Age: 33 Year
  Sex: Female

DRUGS (2)
  1. TALTZ [Suspect]
     Active Substance: IXEKIZUMAB
     Indication: Psoriasis
     Route: 065
     Dates: start: 202506
  2. TALTZ [Suspect]
     Active Substance: IXEKIZUMAB
     Indication: Psoriatic arthropathy

REACTIONS (4)
  - Coma [Unknown]
  - Memory impairment [Unknown]
  - Product dose omission issue [Unknown]
  - Psoriasis [Unknown]

NARRATIVE: CASE EVENT DATE: 20250601
